FAERS Safety Report 11922668 (Version 3)
Quarter: 2016Q1

REPORT INFORMATION
  Report Type: Spontaneous
  Country: US (occurrence: US)
  Receive Date: 20160115
  Receipt Date: 20160229
  Transmission Date: 20160526
  Serious: Yes (Hospitalization)
  Sender: FDA-Public Use
  Company Number: US-ALLERGAN-1600912US

PATIENT
  Age: 68 Year
  Sex: Female
  Weight: 83.9 kg

DRUGS (1)
  1. BOTOX [Suspect]
     Active Substance: ONABOTULINUMTOXINA
     Indication: HYPERTONIC BLADDER
     Dosage: 100 UNITS, SINGLE
     Route: 043
     Dates: start: 20151201, end: 20151201

REACTIONS (12)
  - Pyrexia [Recovered/Resolved]
  - Fatigue [Recovered/Resolved]
  - Muscular weakness [Recovered/Resolved]
  - Urinary incontinence [Recovered/Resolved]
  - Gait disturbance [Recovered/Resolved]
  - Delirium [Recovered/Resolved]
  - Visual impairment [Recovered/Resolved]
  - Feeling cold [Recovered/Resolved]
  - Pain [Recovered/Resolved]
  - Balance disorder [Recovered/Resolved]
  - Hypersensitivity [Recovered/Resolved]
  - Mobility decreased [Recovered/Resolved]

NARRATIVE: CASE EVENT DATE: 201512
